APPROVED DRUG PRODUCT: AZITHROMYCIN
Active Ingredient: AZITHROMYCIN
Strength: EQ 250MG BASE
Dosage Form/Route: TABLET;ORAL
Application: A065507 | Product #001
Applicant: APOTEX CORP
Approved: Jul 13, 2011 | RLD: No | RS: No | Type: DISCN